FAERS Safety Report 4489292-0 (Version None)
Quarter: 2004Q4

REPORT INFORMATION
  Report Type: 
  Country: None (occurrence: None)
  Receive Date: 20041026
  Receipt Date: 20040810
  Transmission Date: 20050328
  Serious: Yes (Death, Hospitalization)
  Sender: FDA-Public Use
  Company Number: MESA-2004-008

PATIENT
  Age: 75 Year
  Sex: Male

DRUGS (13)
  1. SALOFOLK   (MESALAMINE) [Suspect]
     Indication: COLITIS ULCERATIVE
     Dosage: 500 MG 2 TABLETS QID PO
     Route: 048
     Dates: start: 20040519, end: 20040626
  2. RISPERDAL [Suspect]
  3. SYNTHYROID [Concomitant]
  4. CORTENEMA [Concomitant]
  5. HYDROCHLOROTHIAZIDE [Concomitant]
  6. DESYREL [Concomitant]
  7. ASPIRIN [Concomitant]
  8. IRAXURE [Concomitant]
  9. NITROGLYCERINE ISOSORBIDE) [Concomitant]
  10. MONOCOR   (BISOPROLOL FUMERATE) [Concomitant]
  11. IMDUR      (ISOSORBIDE 5-MONONITRATE) [Concomitant]
  12. LOVASTATIN [Concomitant]
  13. FERROUS SULFATE TAB [Concomitant]

REACTIONS (8)
  - ACUTE PULMONARY OEDEMA [None]
  - AGRANULOCYTOSIS [None]
  - CARDIOGENIC SHOCK [None]
  - DELIRIUM [None]
  - INFECTION [None]
  - MYOCARDIAL INFARCTION [None]
  - NEUTROPENIA [None]
  - PYREXIA [None]
